FAERS Safety Report 9477209 (Version 2)
Quarter: 2013Q3

REPORT INFORMATION
  Report Type: Spontaneous
  Country: US (occurrence: US)
  Receive Date: 20130826
  Receipt Date: 20130913
  Transmission Date: 20140515
  Serious: Yes (Other)
  Sender: FDA-Public Use
  Company Number: US-ELI_LILLY_AND_COMPANY-US201308007428

PATIENT
  Age: 59 Year
  Sex: Female
  Weight: 62.59 kg

DRUGS (7)
  1. HUMALOG LISPRO [Suspect]
     Indication: TYPE 1 DIABETES MELLITUS
     Dosage: UNK, PRN
     Route: 058
     Dates: start: 20130621
  2. PLAVIX [Concomitant]
     Indication: PERIPHERAL VASCULAR DISORDER
     Dosage: UNK UNK, UNKNOWN
     Dates: start: 2006
  3. CYMBALTA [Concomitant]
     Indication: DEPRESSION
     Dosage: UNK UNK, UNKNOWN
     Dates: start: 2010
  4. ASPIRIN [Concomitant]
     Indication: PERIPHERAL VASCULAR DISORDER
     Dosage: UNK, UNKNOWN
     Dates: start: 2006
  5. ESTRADIOL [Concomitant]
     Indication: HYSTERECTOMY
     Dosage: UNK, UNKNOWN
     Dates: start: 1997
  6. SYNTHROID [Concomitant]
     Indication: THYROIDITIS
     Dosage: UNK, UNKNOWN
     Dates: start: 2004
  7. ZYRTEC [Concomitant]
     Indication: SEASONAL ALLERGY
     Dosage: UNK, UNKNOWN
     Dates: start: 2010

REACTIONS (2)
  - Hypoglycaemic unconsciousness [Recovered/Resolved]
  - Road traffic accident [Recovered/Resolved]
